FAERS Safety Report 13429932 (Version 1)
Quarter: 2017Q2

REPORT INFORMATION
  Report Type: Report from Study
  Country: None (occurrence: US)
  Receive Date: 20170412
  Receipt Date: 20170412
  Transmission Date: 20170830
  Serious: Yes (Hospitalization)
  Sender: FDA-Public Use
  Company Number: US-ABBVIE-16K-163-1620902-00

PATIENT
  Age: 34 Year
  Sex: Female

DRUGS (4)
  1. FOLIC ACID. [Concomitant]
     Active Substance: FOLIC ACID
     Indication: PRODUCT USED FOR UNKNOWN INDICATION
  2. IRON [Concomitant]
     Active Substance: IRON
     Indication: PRODUCT USED FOR UNKNOWN INDICATION
  3. PNV [Concomitant]
     Indication: PRODUCT USED FOR UNKNOWN INDICATION
  4. HUMIRA [Suspect]
     Active Substance: ADALIMUMAB
     Indication: PRODUCT USED FOR UNKNOWN INDICATION
     Route: 058
     Dates: start: 2001, end: 2012

REACTIONS (12)
  - Tuberculin test positive [Recovered/Resolved]
  - Preterm premature rupture of membranes [Recovered/Resolved]
  - Heart valve incompetence [Not Recovered/Not Resolved]
  - Live birth [Unknown]
  - Migraine [Recovered/Resolved]
  - Exposure during pregnancy [Unknown]
  - Hypoacusis [Recovered/Resolved]
  - Vaginal haemorrhage [Recovered/Resolved]
  - Oedema peripheral [Recovered/Resolved]
  - Sleep apnoea syndrome [Unknown]
  - Lung disorder [Not Recovered/Not Resolved]
  - Extrasystoles [Not Recovered/Not Resolved]

NARRATIVE: CASE EVENT DATE: 2012
